FAERS Safety Report 8388400-9 (Version None)
Quarter: 2012Q2

REPORT INFORMATION
  Report Type: 
  Country: None (occurrence: None)
  Receive Date: 20120525
  Receipt Date: 20120514
  Transmission Date: 20120825
  Serious: Yes (Life-Threatening, Hospitalization)
  Sender: FDA-Public Use
  Company Number: FR-ELI_LILLY_AND_COMPANY-FR201205004503

PATIENT
  Sex: Male
  Weight: 104 kg

DRUGS (6)
  1. LEXOMIL [Concomitant]
  2. AMLODIPINE BESILATE W/ OLMESARTAN MEDOXOMIL [Concomitant]
     Dosage: 1 DF, QD
  3. ZYPREXA [Suspect]
     Dosage: UNK
     Route: 048
     Dates: start: 20110407, end: 20110421
  4. DEPAKOTE [Concomitant]
     Dosage: 1500 MG, QD
     Route: 048
     Dates: start: 20110407
  5. NAPROXEN [Concomitant]
     Indication: ARTHRALGIA
     Dosage: UNK, PRN
  6. COLCHICINE [Concomitant]

REACTIONS (3)
  - RENAL TUBULAR NECROSIS [None]
  - RHABDOMYOLYSIS [None]
  - COMA [None]
